FAERS Safety Report 17399284 (Version 2)
Quarter: 2020Q1

REPORT INFORMATION
  Report Type: Spontaneous
  Country: FR (occurrence: FR)
  Receive Date: 20200211
  Receipt Date: 20200218
  Transmission Date: 20200409
  Serious: Yes (Hospitalization)
  Sender: FDA-Public Use
  Company Number: FR-AMGEN-FRASP2020020384

PATIENT
  Age: 57 Year
  Sex: Male

DRUGS (1)
  1. AMGEVITA [Suspect]
     Active Substance: ADALIMUMAB
     Indication: CROHN^S DISEASE
     Dosage: 40 MILLIGRAM
     Route: 065
     Dates: start: 20200121

REACTIONS (4)
  - Nosocomial infection [Unknown]
  - Chest pain [Unknown]
  - Pain in extremity [Unknown]
  - Postoperative wound infection [Unknown]

NARRATIVE: CASE EVENT DATE: 202001
